FAERS Safety Report 5006505-7 (Version None)
Quarter: 2006Q2

REPORT INFORMATION
  Report Type: 
  Country: None (occurrence: None)
  Receive Date: 20060516
  Receipt Date: 20060502
  Transmission Date: 20061013
  Serious: Yes (Death)
  Sender: FDA-Public Use
  Company Number: NL200605001367

PATIENT
  Age: 55 Year
  Sex: Male
  Weight: 70 kg

DRUGS (3)
  1. ZYPREXA [Suspect]
     Indication: ANXIETY
     Dosage: 5 MG DAILY (1/D) ORAL
     Route: 048
     Dates: start: 20060326, end: 20060326
  2. LEXAPRO/USA/(ESCITALOPRAM) [Concomitant]
  3. XANAX /USA/ (ALPRAZOLAM) [Concomitant]

REACTIONS (2)
  - COMPLETED SUICIDE [None]
  - INDIFFERENCE [None]
